FAERS Safety Report 15693866 (Version 2)
Quarter: 2018Q4

REPORT INFORMATION
  Report Type: Report from Study
  Country: US (occurrence: US)
  Receive Date: 20181206
  Receipt Date: 20181220
  Transmission Date: 20190205
  Serious: Yes (Hospitalization, Other)
  Sender: FDA-Public Use
  Company Number: US-AMGEN-USASP2018171922

PATIENT
  Age: 59 Year
  Sex: Male
  Weight: 86.7 kg

DRUGS (2)
  1. ROMIPLOSTIM [Suspect]
     Active Substance: ROMIPLOSTIM
     Indication: THROMBOCYTOPENIA
     Dosage: 200 MUG, QWK
     Route: 058
     Dates: start: 20161209
  2. FOLFIRI [Concomitant]
     Active Substance: FLUOROURACIL\IRINOTECAN\LEUCOVORIN
     Dosage: UNK

REACTIONS (8)
  - Blood creatinine increased [Unknown]
  - Decreased appetite [Unknown]
  - Leukocytosis [Unknown]
  - Oedema [Unknown]
  - Vomiting [Unknown]
  - Acute kidney injury [Unknown]
  - Abdominal pain [Unknown]
  - Sepsis [Unknown]

NARRATIVE: CASE EVENT DATE: 20181128
